FAERS Safety Report 20780960 (Version 8)
Quarter: 2023Q1

REPORT INFORMATION
  Report Type: Spontaneous
  Country: US (occurrence: US)
  Receive Date: 20220504
  Receipt Date: 20230220
  Transmission Date: 20230418
  Serious: Yes (Hospitalization, Other)
  Sender: FDA-Public Use
  Company Number: US-BRISTOL-MYERS SQUIBB COMPANY-2022-019653

PATIENT
  Age: 77 Year
  Sex: Female

DRUGS (4)
  1. POMALYST [Suspect]
     Active Substance: POMALIDOMIDE
     Indication: Plasma cell myeloma
     Dosage: 14 DAYS OFF
     Route: 048
     Dates: start: 20190226
  2. POMALYST [Suspect]
     Active Substance: POMALIDOMIDE
     Dosage: FREQUENCY : TAKE 1 CAPSULE BY MOUTH EVERY DAY FOR 14 DAYS ON THEN 14 DAYS OFF.
     Route: 048
     Dates: start: 20110922
  3. POMALYST [Suspect]
     Active Substance: POMALIDOMIDE
     Dosage: FREQUENCY : TAKE 1 CAPSULE BY MOUTH EVERY DAY FOR 14 DAYS ON THEN 14 DAYS OFF.
     Route: 048
     Dates: start: 20180612
  4. POMALYST [Suspect]
     Active Substance: POMALIDOMIDE
     Dosage: TAKE 1 CAPSULE BY MOUTH EVERY DAY FOR 14 DAYS ON THEN 14 DAYS OFF.
     Route: 048

REACTIONS (4)
  - Cardiac valve disease [Unknown]
  - Product dose omission issue [Unknown]
  - Off label use [Unknown]
  - Urinary tract infection [Recovered/Resolved with Sequelae]
